FAERS Safety Report 4980393-7 (Version None)
Quarter: 2006Q2

REPORT INFORMATION
  Report Type: 
  Country: None (occurrence: None)
  Receive Date: 20060421
  Receipt Date: 20060421
  Transmission Date: 20061013
  Serious: Yes (Life-Threatening, Hospitalization)
  Sender: FDA-Public Use
  Company Number: None

PATIENT
  Age: 60 Year
  Sex: Male
  Weight: 85 kg

DRUGS (3)
  1. MOXIFLOXACIN HCL [Suspect]
     Indication: BRONCHITIS
     Dosage: 400 MG DAILY PO
     Route: 048
  2. ALBUTEROL SULFATE AUTOHALER [Suspect]
     Indication: BRONCHITIS
     Dosage: 2 PUFFS Q 4-6 HOURS INHAL [CHRONIC]
     Route: 055
  3. BROMOXAFED [Concomitant]

REACTIONS (8)
  - CARDIAC ARREST [None]
  - CARDIAC MYXOMA [None]
  - CIRCULATORY COLLAPSE [None]
  - ELECTROMECHANICAL DISSOCIATION [None]
  - HYPOTENSION [None]
  - MITRAL VALVE INCOMPETENCE [None]
  - PULMONARY OEDEMA [None]
  - VENTRICULAR FIBRILLATION [None]
